FAERS Safety Report 10278243 (Version 1)
Quarter: 2014Q3

REPORT INFORMATION
  Report Type: Spontaneous
  Country: US (occurrence: US)
  Receive Date: 20140704
  Receipt Date: 20140704
  Transmission Date: 20150326
  Serious: No
  Sender: FDA-Public Use
  Company Number: US-PFIZER INC-2014181008

PATIENT
  Age: 32 Year
  Sex: Female
  Weight: 47.62 kg

DRUGS (2)
  1. LYRICA [Suspect]
     Active Substance: PREGABALIN
     Indication: LYME DISEASE
     Dosage: 50 MG, 3X/DAY
     Route: 048
     Dates: start: 201401, end: 201405
  2. LYRICA [Suspect]
     Active Substance: PREGABALIN
     Indication: FIBROMYALGIA

REACTIONS (1)
  - Lip discolouration [Recovered/Resolved]

NARRATIVE: CASE EVENT DATE: 2014
